FAERS Safety Report 10214643 (Version 11)
Quarter: 2019Q3

REPORT INFORMATION
  Report Type: Report from Study
  Country: JP (occurrence: JP)
  Receive Date: 20140603
  Receipt Date: 20190711
  Transmission Date: 20191004
  Serious: Yes (Hospitalization, Other)
  Sender: FDA-Public Use
  Company Number: JP-JNJFOC-20140519903

PATIENT
  Age: 49 Year
  Sex: Male

DRUGS (38)
  1. ETRAVIRINE TABLET [Suspect]
     Active Substance: ETRAVIRINE
     Indication: HIV INFECTION
     Dosage: TRADE NAME: INTELENCE
     Route: 048
     Dates: start: 20081011
  2. TRUVADA [Concomitant]
     Active Substance: EMTRICITABINE\TENOFOVIR DISOPROXIL FUMARATE
     Indication: HIV INFECTION
     Route: 048
     Dates: start: 20060411, end: 20170222
  3. URSO [Concomitant]
     Active Substance: URSODIOL
     Route: 048
     Dates: start: 20150826
  4. PARIET [Concomitant]
     Active Substance: RABEPRAZOLE SODIUM
     Route: 048
     Dates: start: 20120401, end: 20130821
  5. VIDEX [Suspect]
     Active Substance: DIDANOSINE
     Indication: HIV INFECTION
     Route: 048
     Dates: start: 19951018, end: 19951206
  6. VIDEX [Suspect]
     Active Substance: DIDANOSINE
     Route: 048
     Dates: start: 19960313, end: 19970924
  7. LIVACT [Concomitant]
     Active Substance: AMINO ACIDS
     Indication: LIVER DISORDER
     Dosage: 4.5 G
     Route: 048
     Dates: start: 20090803
  8. ETRAVIRINE TABLET [Suspect]
     Active Substance: ETRAVIRINE
     Route: 048
     Dates: start: 20170223
  9. VIDEX [Suspect]
     Active Substance: DIDANOSINE
     Route: 048
     Dates: start: 20001229, end: 20060410
  10. FAROM [Concomitant]
     Active Substance: FAROPENEM SODIUM
     Indication: PYELONEPHRITIS
     Route: 048
     Dates: start: 20150416, end: 20150429
  11. NORVIR [Suspect]
     Active Substance: RITONAVIR
     Route: 048
     Dates: start: 19990819
  12. ADVATE [Concomitant]
     Active Substance: ANTIHEMOPHILIC FACTOR, HUMAN RECOMBINANT
     Indication: FACTOR VIII DEFICIENCY
     Dosage: 1000UT
     Route: 042
     Dates: start: 20100805
  13. LANOCONAZOLE [Concomitant]
     Active Substance: LANOCONAZOLE
     Indication: TINEA INFECTION
     Route: 065
     Dates: start: 20170223
  14. PREZISTA [Suspect]
     Active Substance: DARUNAVIR ETHANOLATE
     Route: 048
     Dates: start: 20170223
  15. NORVIR [Suspect]
     Active Substance: RITONAVIR
     Route: 048
     Dates: start: 20060411, end: 20110608
  16. CROSS EIGHT M [Concomitant]
     Active Substance: ANTIHEMOPHILIC FACTOR HUMAN
     Route: 065
     Dates: end: 20100804
  17. URSO [Concomitant]
     Active Substance: URSODIOL
     Indication: LIVER DISORDER
     Route: 048
     Dates: start: 200003
  18. AMIKACIN SULFATE. [Concomitant]
     Active Substance: AMIKACIN SULFATE
     Indication: PYELONEPHRITIS
     Route: 065
     Dates: start: 20150410, end: 20150415
  19. NORVIR [Suspect]
     Active Substance: RITONAVIR
     Indication: HIV INFECTION
     Route: 048
     Dates: start: 19961218, end: 19970924
  20. VIDEX [Suspect]
     Active Substance: DIDANOSINE
     Route: 048
     Dates: start: 19960724, end: 19970924
  21. ISENTRESS [Suspect]
     Active Substance: RALTEGRAVIR POTASSIUM
     Indication: HIV INFECTION
     Route: 048
     Dates: start: 20080401
  22. ADVATE [Concomitant]
     Active Substance: ANTIHEMOPHILIC FACTOR, HUMAN RECOMBINANT
     Route: 042
     Dates: start: 20170223, end: 20181127
  23. PARIET [Concomitant]
     Active Substance: RABEPRAZOLE SODIUM
     Indication: GASTRITIS
     Route: 048
     Dates: start: 20080924, end: 20120331
  24. MEROPENEM. [Concomitant]
     Active Substance: MEROPENEM
     Route: 041
     Dates: start: 20150411, end: 20150415
  25. NORVIR [Suspect]
     Active Substance: RITONAVIR
     Route: 048
     Dates: start: 20110608
  26. KALETRA [Suspect]
     Active Substance: LOPINAVIR\RITONAVIR
     Indication: HIV INFECTION
     Route: 048
     Dates: start: 20001229, end: 20060410
  27. CROSS EIGHT M [Concomitant]
     Active Substance: ANTIHEMOPHILIC FACTOR HUMAN
     Indication: FACTOR VIII DEFICIENCY
     Route: 065
     Dates: start: 20080401
  28. URSO [Concomitant]
     Active Substance: URSODIOL
     Route: 048
     Dates: start: 20070401, end: 20150224
  29. PARIET [Concomitant]
     Active Substance: RABEPRAZOLE SODIUM
     Route: 048
     Dates: start: 20140319
  30. MUCODYNE [Concomitant]
     Active Substance: CARBOCYSTEINE
     Indication: BRONCHITIS CHRONIC
     Route: 048
     Dates: start: 20090617, end: 20150224
  31. MUCODYNE [Concomitant]
     Active Substance: CARBOCYSTEINE
     Route: 048
     Dates: start: 20170223, end: 20181225
  32. MEROPENEM. [Concomitant]
     Active Substance: MEROPENEM
     Indication: PYELONEPHRITIS
     Route: 041
     Dates: start: 20150407, end: 20150410
  33. ADYNOVATE [Concomitant]
     Active Substance: ANTIHEMOPHILIC FACTOR, HUMAN RECOMBINANT
     Indication: FACTOR VIII DEFICIENCY
     Route: 065
     Dates: start: 20181128
  34. PREZISTA [Suspect]
     Active Substance: DARUNAVIR ETHANOLATE
     Indication: HIV INFECTION
     Route: 048
     Dates: start: 20061111
  35. VIDEX [Suspect]
     Active Substance: DIDANOSINE
     Route: 048
     Dates: start: 19951206, end: 19960313
  36. NORVIR [Suspect]
     Active Substance: RITONAVIR
     Indication: HIV INFECTION
     Route: 048
     Dates: start: 20000401, end: 20001228
  37. DESCOVY [Suspect]
     Active Substance: EMTRICITABINE\TENOFOVIR ALAFENAMIDE FUMARATE
     Indication: HIV INFECTION
     Route: 048
     Dates: start: 20170223
  38. ADVATE [Concomitant]
     Active Substance: ANTIHEMOPHILIC FACTOR, HUMAN RECOMBINANT
     Route: 042
     Dates: start: 20140401

REACTIONS (7)
  - Dyslipidaemia [Recovered/Resolved]
  - Anaemia [Not Recovered/Not Resolved]
  - Hepatocellular carcinoma [Recovered/Resolved]
  - Hepatic cirrhosis [Not Recovered/Not Resolved]
  - Hyperbilirubinaemia [Recovered/Resolved]
  - Pyelonephritis [Recovered/Resolved]
  - Osteoporosis [Not Recovered/Not Resolved]

NARRATIVE: CASE EVENT DATE: 20101026
